FAERS Safety Report 16962885 (Version 1)
Quarter: 2019Q4

REPORT INFORMATION
  Report Type: Spontaneous
  Country: US (occurrence: US)
  Receive Date: 20191025
  Receipt Date: 20191025
  Transmission Date: 20200122
  Serious: No
  Sender: FDA-Public Use
  Company Number: US-ASTRAZENECA-2019SF38866

PATIENT
  Age: 24910 Day
  Sex: Male
  Weight: 95.3 kg

DRUGS (1)
  1. SYMBICORT [Suspect]
     Active Substance: BUDESONIDE\FORMOTEROL FUMARATE DIHYDRATE
     Indication: BRONCHITIS
     Dosage: ONE PUFF TWICE A DAY
     Route: 055
     Dates: start: 2017

REACTIONS (5)
  - Respiration abnormal [Recovering/Resolving]
  - Chest pain [Unknown]
  - Cough [Recovering/Resolving]
  - Intentional device misuse [Unknown]
  - Secretion discharge [Recovering/Resolving]

NARRATIVE: CASE EVENT DATE: 20190923
